FAERS Safety Report 5209612-9 (Version None)
Quarter: 2007Q2

REPORT INFORMATION
  Report Type: 
  Country: None (occurrence: None)
  Receive Date: 20070116
  Receipt Date: 20070109
  Transmission Date: 20071010
  Serious: Yes (Other)
  Sender: FDA-Public Use
  Company Number: JP-PFIZER INC-2006156024

PATIENT
  Age: 35 Year
  Sex: Female

DRUGS (3)
  1. ALDACTONE [Suspect]
     Route: 048
  2. ALDACTONE [Suspect]
     Dosage: DAILY DOSE:100MG
     Route: 048
  3. ADALAT [Concomitant]
     Route: 048

REACTIONS (2)
  - MENSTRUATION IRREGULAR [None]
  - METRORRHAGIA [None]
